FAERS Safety Report 12700519 (Version 2)
Quarter: 2016Q3

REPORT INFORMATION
  Report Type: Spontaneous
  Country: US (occurrence: US)
  Receive Date: 20160830
  Receipt Date: 20160902
  Transmission Date: 20161109
  Serious: Yes (Other)
  Sender: FDA-Public Use
  Company Number: US-TEVA-687355USA

PATIENT
  Age: 45 Year
  Sex: Female

DRUGS (1)
  1. ZECUITY [Suspect]
     Active Substance: SUMATRIPTAN SUCCINATE
     Indication: MIGRAINE
     Route: 062
     Dates: start: 20160817, end: 20160817

REACTIONS (8)
  - Application site erythema [Unknown]
  - Application site scar [Unknown]
  - Incorrect drug administration duration [Unknown]
  - Sunburn [Unknown]
  - Incorrect drug administration duration [Unknown]
  - Application site swelling [Unknown]
  - Hypersensitivity [Unknown]
  - Product physical issue [Unknown]

NARRATIVE: CASE EVENT DATE: 20160817
